FAERS Safety Report 24396276 (Version 3)
Quarter: 2024Q4

REPORT INFORMATION
  Report Type: Report from Study
  Country: AR (occurrence: AR)
  Receive Date: 20241004
  Receipt Date: 20241125
  Transmission Date: 20250115
  Serious: Yes (Hospitalization)
  Sender: AKCEA THERAPEUTICS
  Company Number: AR-AKCEA THERAPEUTICS, INC.-2024IS006665

PATIENT

DRUGS (3)
  1. TEGSEDI [Suspect]
     Active Substance: INOTERSEN SODIUM
     Indication: Hereditary neuropathic amyloidosis
     Dosage: 284 MILLIGRAM, QW
     Route: 058
     Dates: start: 20220704
  2. PREGABALIN [Concomitant]
     Active Substance: PREGABALIN
     Indication: Product used for unknown indication
     Dosage: 1 GRAM
     Route: 065
  3. LOPERAMIDE HYDROCHLORIDE [Concomitant]
     Active Substance: LOPERAMIDE HYDROCHLORIDE
     Indication: Product used for unknown indication
     Dosage: 1 GRAM
     Route: 065

REACTIONS (3)
  - Dehydration [Recovered/Resolved]
  - Underweight [Not Recovered/Not Resolved]
  - Diarrhoea [Recovered/Resolved]
